FAERS Safety Report 14293733 (Version 1)
Quarter: 2017Q4

REPORT INFORMATION
  Report Type: Spontaneous
  Country: US (occurrence: US)
  Receive Date: 20171216
  Receipt Date: 20171216
  Transmission Date: 20180321
  Serious: Yes (Other)
  Sender: FDA-Public Use
  Company Number: US-ACCORD-061814

PATIENT
  Age: 6 Month
  Sex: Male
  Weight: 6.3 kg

DRUGS (4)
  1. CALCITRIOL. [Concomitant]
     Active Substance: CALCITRIOL
     Indication: HYPOCALCAEMIA
  2. CHLOROTHIAZIDE/CHLOROTHIAZIDE SODIUM [Concomitant]
     Indication: BRONCHOPULMONARY DYSPLASIA
  3. PREDNISONE. [Concomitant]
     Active Substance: PREDNISONE
     Indication: BRONCHOPULMONARY DYSPLASIA
  4. FUROSEMIDE. [Suspect]
     Active Substance: FUROSEMIDE
     Indication: BRONCHOPULMONARY DYSPLASIA

REACTIONS (2)
  - Hyperparathyroidism secondary [Recovered/Resolved]
  - Off label use [Unknown]
